FAERS Safety Report 6986461-2 (Version None)
Quarter: 2010Q3

REPORT INFORMATION
  Report Type: 
  Country: None (occurrence: None)
  Receive Date: 20100915
  Receipt Date: 20090626
  Transmission Date: 20110219
  Serious: No
  Sender: FDA-Public Use
  Company Number: US-WYE-H09938509

PATIENT
  Sex: Male

DRUGS (2)
  1. PRISTIQ [Suspect]
     Indication: DEPRESSION
     Route: 048
     Dates: start: 20090619, end: 20090622
  2. PRISTIQ [Suspect]
     Route: 048
     Dates: start: 20090623

REACTIONS (2)
  - POLLAKIURIA [None]
  - URINARY HESITATION [None]
